FAERS Safety Report 9791431 (Version 2)
Quarter: 2014Q1

REPORT INFORMATION
  Report Type: Spontaneous
  Country: JP (occurrence: JP)
  Receive Date: 20140101
  Receipt Date: 20140101
  Transmission Date: 20141002
  Serious: Yes (Death, Other)
  Sender: FDA-Public Use
  Company Number: PHHY2013JP148004

PATIENT
  Age: 74 Year
  Sex: Female
  Weight: 53 kg

DRUGS (14)
  1. VOLTAREN [Suspect]
     Indication: HEADACHE
     Route: 048
  2. PREDONINE [Concomitant]
     Dosage: 20 MG, DAILY
  3. PREDONINE [Concomitant]
     Dosage: 30 MG, DAILY
  4. PREDONINE [Concomitant]
     Dosage: 40 MG
  5. PREDONINE [Concomitant]
     Dosage: 17.5 MG, DAILY
  6. PREDONINE [Concomitant]
     Dosage: 15 MG,
  7. ENDOXAN [Concomitant]
     Dosage: 500 MG
  8. ENDOXAN [Concomitant]
     Dosage: 400 MG
  9. INSULIN [Concomitant]
     Indication: DIABETES MELLITUS
  10. ISONIAZID [Concomitant]
  11. RIFAMPICIN [Concomitant]
  12. SOLUMEDROL [Concomitant]
     Dosage: 500 MG, UNK
  13. CICLOSPORIN A [Concomitant]
     Dosage: 150 MG,
  14. SULFAMETHOXAZOLE W/TRIMETHOPRIM [Concomitant]

REACTIONS (2)
  - Respiratory failure [Fatal]
  - Gastric ulcer [Recovering/Resolving]
